FAERS Safety Report 19233144 (Version 2)
Quarter: 2021Q2

REPORT INFORMATION
  Report Type: Spontaneous
  Country: US (occurrence: US)
  Receive Date: 20210507
  Receipt Date: 20210611
  Transmission Date: 20210717
  Serious: Yes (Hospitalization, Other)
  Sender: FDA-Public Use
  Company Number: US-GLAXOSMITHKLINE-US2020227326

PATIENT
  Age: 85 Year
  Sex: Female

DRUGS (1)
  1. TUMS ULTRA [Suspect]
     Active Substance: CALCIUM CARBONATE
     Indication: PRODUCT USED FOR UNKNOWN INDICATION
     Dosage: UNK
     Dates: start: 20201113

REACTIONS (13)
  - Stress [Unknown]
  - Cerebral haemorrhage [Unknown]
  - Aneurysm [Unknown]
  - Tooth fracture [Unknown]
  - Wrong technique in product usage process [Unknown]
  - Crying [Unknown]
  - Cerebrovascular accident [Unknown]
  - Seizure [Unknown]
  - Pain [Unknown]
  - Frustration tolerance decreased [Unknown]
  - Product complaint [Unknown]
  - Insomnia [Unknown]
  - Anger [Unknown]

NARRATIVE: CASE EVENT DATE: 20201113
